FAERS Safety Report 16210653 (Version 2)
Quarter: 2019Q2

REPORT INFORMATION
  Report Type: Spontaneous
  Country: US (occurrence: US)
  Receive Date: 20190418
  Receipt Date: 20190524
  Transmission Date: 20190711
  Serious: No
  Sender: FDA-Public Use
  Company Number: PHEH2019US016317

PATIENT
  Age: 62 Year
  Sex: Female
  Weight: 63.49 kg

DRUGS (2)
  1. COSENTYX [Suspect]
     Active Substance: SECUKINUMAB
     Indication: PSORIATIC ARTHROPATHY
  2. COSENTYX [Suspect]
     Active Substance: SECUKINUMAB
     Indication: PSORIASIS
     Dosage: 300 MG, UNK
     Route: 058
     Dates: start: 20180730, end: 20190412

REACTIONS (12)
  - Influenza like illness [Recovering/Resolving]
  - Tongue oedema [Unknown]
  - Swelling face [Recovered/Resolved]
  - Pharyngeal swelling [Recovering/Resolving]
  - Dyspnoea [Recovered/Resolved]
  - Dysphagia [Unknown]
  - Oedema mouth [Unknown]
  - Allergic oedema [Unknown]
  - Pruritus [Recovered/Resolved]
  - Eyelid oedema [Unknown]
  - Asthma [Unknown]
  - Wheezing [Unknown]

NARRATIVE: CASE EVENT DATE: 201811
